FAERS Safety Report 20373788 (Version 1)
Quarter: 2022Q1

REPORT INFORMATION
  Report Type: Spontaneous
  Country: US (occurrence: US)
  Receive Date: 20220125
  Receipt Date: 20220125
  Transmission Date: 20220423
  Serious: No
  Sender: FDA-Public Use
  Company Number: US-009507513-2201USA004555

PATIENT
  Sex: Female

DRUGS (6)
  1. PRINIVIL [Suspect]
     Active Substance: LISINOPRIL
     Indication: Hypertension
     Dosage: 10 MG 1X/DAY
     Route: 048
     Dates: start: 2013
  2. DICLOFENAC [Suspect]
     Active Substance: DICLOFENAC
     Indication: Osteoarthritis
     Dosage: 75 MG 2X/DAY
     Dates: start: 2013
  3. PROVENTIL [Concomitant]
     Active Substance: ALBUTEROL
     Indication: Prophylaxis against bronchospasm
     Dosage: 2 (90 MCG) PUFFS/6 HRS
     Dates: start: 2013
  4. ACYCLOVIR [Concomitant]
     Active Substance: ACYCLOVIR
     Indication: Herpes zoster
     Dosage: 800 MG, WHEN NEEDED FOR SHINGLES
     Dates: start: 2012, end: 202007
  5. ACYCLOVIR [Concomitant]
     Active Substance: ACYCLOVIR
     Dosage: 400 MG, WHEN NEEDED FOR SHINGLES
     Dates: start: 202007
  6. CALCIUM CARBONATE [Concomitant]
     Active Substance: CALCIUM CARBONATE
     Indication: Osteoporosis prophylaxis
     Dosage: 600 MG 2X/DAY
     Dates: start: 2013

REACTIONS (1)
  - Labelled drug-drug interaction issue [Unknown]

NARRATIVE: CASE EVENT DATE: 20130101
